FAERS Safety Report 7406434-5 (Version None)
Quarter: 2011Q2

REPORT INFORMATION
  Report Type: 
  Country: None (occurrence: None)
  Receive Date: 20110411
  Receipt Date: 20110404
  Transmission Date: 20111010
  Serious: Yes (Hospitalization, Other)
  Sender: FDA-Public Use
  Company Number: PHHO2009JP04212

PATIENT
  Sex: Male
  Weight: 53 kg

DRUGS (14)
  1. PREDNISOLONE [Suspect]
  2. HOKUNALIN [Concomitant]
     Indication: ASTHMA
  3. MUCODYNE [Concomitant]
     Indication: ASTHMA
  4. SINGULAIR [Concomitant]
     Indication: ASTHMA
  5. EVEROLIMUS [Suspect]
     Dosage: 5 MG DAILY
     Route: 048
     Dates: start: 20090407
  6. FLUTICASONE PROPIONATE W/SALMETEROL XINAFOATE [Suspect]
  7. THEOLONG [Concomitant]
     Indication: ASTHMA
  8. BETAMETHASONE [Suspect]
  9. EVEROLIMUS [Suspect]
     Indication: PANCREATIC NEUROENDOCRINE TUMOUR
     Dosage: 10 MG DAILY
     Route: 048
     Dates: start: 20081127, end: 20090317
  10. SEREVENT [Concomitant]
     Indication: ASTHMA
  11. SULTANOL [Suspect]
  12. FLUTIDE [Concomitant]
     Indication: ASTHMA
  13. MUCOSOLVAN [Concomitant]
     Indication: ASTHMA
  14. EVEROLIMUS [Suspect]
     Dosage: 5 MG, BID
     Route: 048
     Dates: start: 20100128

REACTIONS (10)
  - PYREXIA [None]
  - C-REACTIVE PROTEIN INCREASED [None]
  - BILIARY DILATATION [None]
  - CHOLANGITIS [None]
  - PANCREATITIS [None]
  - CHOLESTASIS [None]
  - BLOOD LACTATE DEHYDROGENASE INCREASED [None]
  - NEOPLASM MALIGNANT [None]
  - PNEUMONITIS [None]
  - VOMITING [None]
